FAERS Safety Report 6256331-6 (Version None)
Quarter: 2009Q2

REPORT INFORMATION
  Report Type: 
  Country: None (occurrence: None)
  Receive Date: 20090630
  Receipt Date: 20090630
  Transmission Date: 20091009
  Serious: Yes (Other)
  Sender: FDA-Public Use
  Company Number: None

PATIENT
  Sex: Male
  Weight: 93.8946 kg

DRUGS (1)
  1. LEVAQUIN [Suspect]
     Indication: PROSTATE INFECTION
     Dosage: 500 MG 1/DAY PO
     Route: 048
     Dates: start: 20090315, end: 20090415

REACTIONS (3)
  - HAEMATOMA [None]
  - LIGAMENT RUPTURE [None]
  - TENDON RUPTURE [None]
